FAERS Safety Report 13394371 (Version 1)
Quarter: 2017Q2

REPORT INFORMATION
  Report Type: Report from Study
  Country: US (occurrence: BR)
  Receive Date: 20170402
  Receipt Date: 20170402
  Transmission Date: 20170830
  Serious: Yes (Other)
  Sender: FDA-Public Use
  Company Number: US-SUNOVION-2017SUN001368

PATIENT
  Sex: Male
  Weight: 80 kg

DRUGS (3)
  1. INDACATEROL AND GLYCOPYRROLATE [Suspect]
     Active Substance: GLYCOPYRROLATE\INDACATEROL MALEATE
     Indication: RESPIRATORY DISORDER
     Dosage: 1 DF (GLYCOPYRRONIUM 50 UG AND INDACATEROL 110 UG), QD
     Route: 055
  2. AEROLIN [Concomitant]
     Active Substance: ALBUTEROL
     Dosage: UNK
  3. INDACATEROL AND GLYCOPYRROLATE [Suspect]
     Active Substance: GLYCOPYRROLATE\INDACATEROL MALEATE
     Indication: RESPIRATORY FAILURE

REACTIONS (8)
  - Malaise [Unknown]
  - Product use issue [Unknown]
  - Pneumonia [Unknown]
  - Secretion discharge [Unknown]
  - Haemorrhage [Unknown]
  - Viral infection [Unknown]
  - Asthma [Unknown]
  - Cardiac failure [Unknown]
